FAERS Safety Report 19364153 (Version 1)
Quarter: 2021Q2

REPORT INFORMATION
  Report Type: Spontaneous
  Country: CA (occurrence: CA)
  Receive Date: 20210603
  Receipt Date: 20210603
  Transmission Date: 20210717
  Serious: Yes (Hospitalization, Other)
  Sender: FDA-Public Use
  Company Number: CA-AUROBINDO-AUR-APL-2021-022435

PATIENT
  Age: 85 Year
  Sex: Male

DRUGS (4)
  1. CIPROFLOXACIN FILM?COATED TABLETS [Suspect]
     Active Substance: CIPROFLOXACIN
     Indication: PNEUMONIA
     Dosage: 500 MILLIGRAM, TWO TIMES A DAY
     Route: 048
  2. TAZOCIN [Concomitant]
     Active Substance: PIPERACILLIN SODIUM\TAZOBACTAM SODIUM
     Indication: PRODUCT USED FOR UNKNOWN INDICATION
     Dosage: UNK
     Route: 065
  3. CIPROFLOXACIN FILM?COATED TABLETS [Suspect]
     Active Substance: CIPROFLOXACIN
     Dosage: 250 MILLIGRAM, TWO TIMES A DAY
     Route: 048
  4. MEROPENEM. [Concomitant]
     Active Substance: MEROPENEM
     Indication: PRODUCT USED FOR UNKNOWN INDICATION
     Dosage: UNK
     Route: 065

REACTIONS (1)
  - Clostridium difficile colitis [Unknown]
